FAERS Safety Report 9997597 (Version 1)
Quarter: 2014Q1

REPORT INFORMATION
  Report Type: Spontaneous
  Country: US (occurrence: None)
  Receive Date: 20140225
  Receipt Date: 20140225
  Transmission Date: 20141002
  Serious: Yes (Other)
  Sender: FDA-Public Use
  Company Number: 2013-356

PATIENT
  Age: 35 Year
  Sex: Female
  Weight: 55.3 kg

DRUGS (7)
  1. PRIALT [Suspect]
     Indication: COMPLEX REGIONAL PAIN SYNDROME
     Dosage: SINGLE
     Route: 037
     Dates: start: 201206
  2. PRIALT [Suspect]
     Indication: PAIN
     Dosage: SINGLE
     Route: 037
     Dates: start: 201206
  3. DIAZEPAM (DIAZEPAM) [Concomitant]
  4. MARINOL [Concomitant]
  5. FUROSEMIDE (FUROSEMIDE) [Concomitant]
  6. KLOR-CON [Concomitant]
  7. OXYCODONE HCL [Concomitant]

REACTIONS (5)
  - Hallucination, visual [None]
  - Hallucination, auditory [None]
  - Menstruation irregular [None]
  - Visual brightness [None]
  - Hallucination [None]
